FAERS Safety Report 7002990-X (Version None)
Quarter: 2010Q3

REPORT INFORMATION
  Report Type: 
  Country: None (occurrence: None)
  Receive Date: 20100920
  Receipt Date: 20100309
  Transmission Date: 20110219
  Serious: No
  Sender: FDA-Public Use
  Company Number: US-ASTRAZENECA-2010SE10278

PATIENT
  Age: 34 Year
  Sex: Male
  Weight: 104.3 kg

DRUGS (6)
  1. SEROQUEL [Suspect]
     Indication: BIPOLAR DISORDER
     Route: 048
     Dates: start: 20080101
  2. SEROQUEL [Suspect]
     Route: 048
  3. SEROQUEL [Suspect]
     Route: 048
  4. PRISTIQ [Concomitant]
  5. LAMICTAL [Concomitant]
  6. CLONAZEPAM [Concomitant]

REACTIONS (3)
  - ILL-DEFINED DISORDER [None]
  - TACHYCARDIA [None]
  - TREMOR [None]
